FAERS Safety Report 7592675-3 (Version None)
Quarter: 2011Q2

REPORT INFORMATION
  Report Type: 
  Country: None (occurrence: None)
  Receive Date: 20110628
  Receipt Date: 20110614
  Transmission Date: 20111010
  Serious: Yes (Hospitalization)
  Sender: FDA-Public Use
  Company Number: 1000021739

PATIENT
  Age: 63 Year
  Sex: Male

DRUGS (1)
  1. ROFLUMILAST (ROFLUMILAST) (500 MICROGRAM, TABLETS) [Suspect]
     Indication: CHRONIC OBSTRUCTIVE PULMONARY DISEASE
     Dosage: ORAL
     Route: 048
     Dates: start: 20110325, end: 20110410

REACTIONS (6)
  - ASTHENIA [None]
  - NAUSEA [None]
  - CONDITION AGGRAVATED [None]
  - ANXIETY [None]
  - DECREASED APPETITE [None]
  - MYALGIA [None]
